FAERS Safety Report 9816361 (Version 1)
Quarter: 2014Q1

REPORT INFORMATION
  Report Type: Spontaneous
  Country: US (occurrence: US)
  Receive Date: 20140114
  Receipt Date: 20140114
  Transmission Date: 20141002
  Serious: Yes (Hospitalization)
  Sender: FDA-Public Use
  Company Number: US-B.I. PHARMACEUTICALS,INC./RIDGEFIELD-2014-BI-01380BP

PATIENT
  Age: 57 Year
  Sex: Female
  Weight: 82 kg

DRUGS (8)
  1. SPIRIVA [Suspect]
     Indication: CHRONIC OBSTRUCTIVE PULMONARY DISEASE
     Dosage: 18 MCG
     Route: 048
     Dates: start: 20131227, end: 20131227
  2. SPIRIVA [Suspect]
     Dosage: 18 MCG
     Route: 055
     Dates: start: 2012
  3. FUROSEMIDE [Concomitant]
     Indication: LOCAL SWELLING
     Route: 048
  4. DALIRESP [Concomitant]
     Indication: CHRONIC OBSTRUCTIVE PULMONARY DISEASE
     Dosage: 500 MG
     Route: 048
  5. PROAIR [Concomitant]
     Indication: CHRONIC OBSTRUCTIVE PULMONARY DISEASE
     Route: 055
  6. DILTIAZEM [Concomitant]
     Indication: ATRIAL FIBRILLATION
     Dosage: 120 MG
     Route: 048
  7. SERTRALINE [Concomitant]
     Indication: DEPRESSION
     Dosage: 50 MG
     Route: 048
  8. POTASSIUM [Concomitant]
     Route: 048

REACTIONS (4)
  - Atrial fibrillation [Recovered/Resolved]
  - Dyspnoea [Recovered/Resolved]
  - Increased upper airway secretion [Not Recovered/Not Resolved]
  - Incorrect route of drug administration [Recovered/Resolved]
